FAERS Safety Report 24856092 (Version 2)
Quarter: 2025Q3

REPORT INFORMATION
  Report Type: Report from Study
  Country: CA (occurrence: CA)
  Receive Date: 20250117
  Receipt Date: 20250701
  Transmission Date: 20251020
  Serious: Yes (Congenital Anomaly)
  Sender: JOHNSON AND JOHNSON
  Company Number: CA-JNJFOC-20250148224

PATIENT
  Sex: Male

DRUGS (2)
  1. REMICADE [Suspect]
     Active Substance: INFLIXIMAB
     Indication: Colitis ulcerative
     Route: 064
     Dates: start: 20171121
  2. REMICADE [Suspect]
     Active Substance: INFLIXIMAB
     Route: 063
     Dates: start: 20171121

REACTIONS (3)
  - Congenital anomaly [Not Recovered/Not Resolved]
  - Foetal exposure during pregnancy [Unknown]
  - Breast feeding [Unknown]
